FAERS Safety Report 7817063-3 (Version None)
Quarter: 2011Q4

REPORT INFORMATION
  Report Type: 
  Country: None (occurrence: None)
  Receive Date: 20111017
  Receipt Date: 20111011
  Transmission Date: 20120403
  Serious: Yes (Death)
  Sender: FDA-Public Use
  Company Number: PHHY2010US39606

PATIENT
  Sex: Male
  Weight: 92.971 kg

DRUGS (1)
  1. EXJADE [Suspect]
     Indication: HAEMOCHROMATOSIS
     Dosage: 500 MG, BID
     Route: 048
     Dates: start: 20100427

REACTIONS (2)
  - DEATH [None]
  - ABDOMINAL DISCOMFORT [None]
